FAERS Safety Report 9612601 (Version 2)
Quarter: 2013Q4

REPORT INFORMATION
  Report Type: Spontaneous
  Country: US (occurrence: US)
  Receive Date: 20131010
  Receipt Date: 20131022
  Transmission Date: 20140711
  Serious: Yes (Death, Life-Threatening, Hospitalization)
  Sender: FDA-Public Use
  Company Number: US-JNJFOC-20131005199

PATIENT
  Age: 70 Year
  Sex: Female
  Weight: 83.92 kg

DRUGS (17)
  1. XARELTO [Suspect]
     Indication: CEREBROVASCULAR ACCIDENT PROPHYLAXIS
     Route: 048
     Dates: start: 20131005
  2. XARELTO [Suspect]
     Indication: CEREBROVASCULAR ACCIDENT PROPHYLAXIS
     Route: 048
     Dates: start: 201205
  3. XARELTO [Suspect]
     Indication: ATRIAL FIBRILLATION
     Route: 048
     Dates: start: 20131005
  4. XARELTO [Suspect]
     Indication: ATRIAL FIBRILLATION
     Route: 048
     Dates: start: 201205
  5. WARFARIN [Suspect]
     Indication: PRODUCT USED FOR UNKNOWN INDICATION
     Route: 048
     Dates: start: 20090921, end: 20131006
  6. LASIX [Concomitant]
     Route: 048
     Dates: end: 20130906
  7. KLOR-CON [Concomitant]
     Route: 048
     Dates: start: 20120615, end: 20131006
  8. LEVOTHYROXINE [Concomitant]
     Route: 048
     Dates: start: 20101015, end: 20131006
  9. LOPRESSOR [Concomitant]
     Route: 048
  10. VITAMIN B-COMPLEX [Concomitant]
     Route: 048
     Dates: start: 20120615, end: 20131006
  11. VITAMIN B-6 [Concomitant]
     Route: 048
  12. VITAMIN B-12 [Concomitant]
     Route: 048
  13. VITAMIN C [Concomitant]
     Route: 048
     Dates: start: 20120615, end: 20131006
  14. VITAMIN D3 [Concomitant]
     Route: 048
     Dates: end: 20131006
  15. CELEXA [Concomitant]
     Route: 048
  16. METOPROLOL SUCCINATE [Concomitant]
     Route: 048
     Dates: start: 20090921, end: 20131006
  17. LEXAPRO [Concomitant]
     Route: 048
     Dates: start: 20081008, end: 20131006

REACTIONS (8)
  - Cerebellar haemorrhage [Fatal]
  - Respiratory failure [Unknown]
  - Convulsion [Unknown]
  - Malignant hypertension [Unknown]
  - Hydrocephalus [Unknown]
  - Atrial fibrillation [Unknown]
  - Hyperglycaemia [Unknown]
  - Hypokalaemia [Unknown]
